FAERS Safety Report 15227003 (Version 3)
Quarter: 2019Q3

REPORT INFORMATION
  Report Type: Spontaneous
  Country: GB (occurrence: GB)
  Receive Date: 20180801
  Receipt Date: 20190801
  Transmission Date: 20191004
  Serious: Yes (Life-Threatening, Hospitalization, Other)
  Sender: FDA-Public Use
  Company Number: PHHY2018GB061076

PATIENT
  Age: 53 Year
  Sex: Female
  Weight: 55 kg

DRUGS (7)
  1. CYCLIZINE [Concomitant]
     Active Substance: CYCLIZINE
     Indication: PRODUCT USED FOR UNKNOWN INDICATION
     Route: 065
  2. OLANZAPINE. [Suspect]
     Active Substance: OLANZAPINE
     Indication: BIPOLAR DISORDER
     Dosage: 20 MG, UNK
     Route: 048
     Dates: start: 20130912, end: 20180522
  3. OXYNORM [Concomitant]
     Active Substance: OXYCODONE HYDROCHLORIDE
     Indication: PRODUCT USED FOR UNKNOWN INDICATION
     Route: 065
  4. MIRTAZAPINE. [Concomitant]
     Active Substance: MIRTAZAPINE
     Indication: PRODUCT USED FOR UNKNOWN INDICATION
     Dosage: UNK
     Route: 065
  5. PREGABALIN. [Concomitant]
     Active Substance: PREGABALIN
     Indication: PRODUCT USED FOR UNKNOWN INDICATION
     Route: 065
  6. KEPPRA [Concomitant]
     Active Substance: LEVETIRACETAM
     Indication: PRODUCT USED FOR UNKNOWN INDICATION
     Route: 065
  7. PHENOXYMETHYLPENICILLIN [Suspect]
     Active Substance: PENICILLIN V
     Indication: PRODUCT USED FOR UNKNOWN INDICATION
     Dosage: UNK
     Route: 065

REACTIONS (7)
  - Suffocation feeling [Recovered/Resolved]
  - Malaise [Recovered/Resolved]
  - Cerebrovascular accident [Recovered/Resolved]
  - Palpitations [Recovered/Resolved]
  - Seizure [Recovered/Resolved]
  - Heart rate increased [Recovered/Resolved]
  - Malaise [Recovered/Resolved]

NARRATIVE: CASE EVENT DATE: 20180509
